FAERS Safety Report 6248375-5 (Version None)
Quarter: 2009Q2

REPORT INFORMATION
  Report Type: 
  Country: None (occurrence: None)
  Receive Date: 20090629
  Receipt Date: 20090623
  Transmission Date: 20091009
  Serious: Yes (Life-Threatening, Other)
  Sender: FDA-Public Use
  Company Number: PHHY2009BR25191

PATIENT
  Age: 85 Year
  Sex: Male
  Weight: 85 kg

DRUGS (4)
  1. EXELON [Suspect]
     Indication: MEMORY IMPAIRMENT
     Dosage: 6 MG, QD
     Route: 048
     Dates: start: 20090620
  2. DEPAKENE [Concomitant]
     Indication: BIPOLAR DISORDER
     Dosage: 500 MG, BID
     Route: 048
  3. LEXAPRO [Concomitant]
     Indication: BIPOLAR DISORDER
     Dosage: 10 MG, HALF TABLET PER DAY
     Route: 048
     Dates: start: 20081201
  4. BETASERC [Concomitant]
     Dosage: 24 MG, BID
     Dates: start: 20081201

REACTIONS (10)
  - ASTHENIA [None]
  - BALANCE DISORDER [None]
  - CHILLS [None]
  - DAYDREAMING [None]
  - DIARRHOEA [None]
  - FEELING ABNORMAL [None]
  - SENSATION OF PRESSURE [None]
  - SOMNOLENCE [None]
  - TREMOR [None]
  - VOMITING [None]
